FAERS Safety Report 8934225 (Version 2)
Quarter: 2013Q1

REPORT INFORMATION
  Report Type: Spontaneous
  Country: US (occurrence: FR)
  Receive Date: 20121129
  Receipt Date: 20130321
  Transmission Date: 20140127
  Serious: Yes (Death, Hospitalization, Other)
  Sender: FDA-Public Use
  Company Number: US-009507513-1209USA003353

PATIENT
  Sex: Male

DRUGS (11)
  1. ISENTRESS [Suspect]
     Route: 048
  2. INTELENCE [Suspect]
     Route: 048
  3. ETHAMBUTOL HYDROCHLORIDE [Suspect]
     Route: 042
  4. ROVALCYTE [Suspect]
     Route: 042
  5. BACTRIM [Suspect]
     Route: 042
  6. AZITHROMYCIN [Suspect]
     Route: 048
  7. EPIVIR [Suspect]
     Route: 048
  8. RETROVIR [Suspect]
     Route: 042
  9. FUZEON [Suspect]
     Route: 058
  10. ANSATIPINE [Suspect]
     Route: 048
  11. MEDROL [Concomitant]

REACTIONS (3)
  - Leukopenia [Fatal]
  - Pancytopenia [Fatal]
  - Neutropenia [Fatal]
